FAERS Safety Report 20153324 (Version 1)
Quarter: 2021Q4

REPORT INFORMATION
  Report Type: Spontaneous
  Country: CA (occurrence: CA)
  Receive Date: 20211206
  Receipt Date: 20211206
  Transmission Date: 20220304
  Serious: Yes (Other)
  Sender: FDA-Public Use
  Company Number: None

PATIENT
  Age: 65 Year
  Sex: Female

DRUGS (2)
  1. TRINTELLIX [Suspect]
     Active Substance: VORTIOXETINE HYDROBROMIDE
     Indication: Anxiety
     Dosage: 5 MILLIGRAM, QD
     Route: 048
  2. UNSPECIFIED INGREDIENT [Concomitant]
     Active Substance: UNSPECIFIED INGREDIENT
     Indication: Product used for unknown indication
     Dosage: UNK
     Route: 065

REACTIONS (11)
  - Neurotoxicity [Recovering/Resolving]
  - Anxiety [Recovering/Resolving]
  - Emotional distress [Recovering/Resolving]
  - Eye irritation [Recovering/Resolving]
  - Faeces hard [Recovering/Resolving]
  - Hypersomnia [Recovering/Resolving]
  - Hypoaesthesia [Recovering/Resolving]
  - Neuralgia [Recovering/Resolving]
  - Panic attack [Recovering/Resolving]
  - Product use in unapproved indication [Unknown]
  - Constipation [Recovering/Resolving]
